FAERS Safety Report 13653175 (Version 1)
Quarter: 2017Q2

REPORT INFORMATION
  Report Type: Spontaneous
  Country: US (occurrence: US)
  Receive Date: 20170614
  Receipt Date: 20170614
  Transmission Date: 20170830
  Serious: No
  Sender: FDA-Public Use
  Company Number: US-ROCHE-1288944

PATIENT
  Sex: Female

DRUGS (3)
  1. AREDIA [Concomitant]
     Active Substance: PAMIDRONATE DISODIUM
  2. SYMBICORT [Concomitant]
     Active Substance: BUDESONIDE\FORMOTEROL FUMARATE DIHYDRATE
  3. XELODA [Suspect]
     Active Substance: CAPECITABINE
     Indication: PRODUCT USED FOR UNKNOWN INDICATION
     Route: 065

REACTIONS (4)
  - Road traffic accident [Unknown]
  - Toothache [Unknown]
  - Respiratory disorder [Unknown]
  - Back pain [Unknown]

NARRATIVE: CASE EVENT DATE: 201207
